FAERS Safety Report 23113644 (Version 4)
Quarter: 2024Q1

REPORT INFORMATION
  Report Type: Spontaneous
  Country: US (occurrence: US)
  Receive Date: 20231027
  Receipt Date: 20240216
  Transmission Date: 20240409
  Serious: No
  Sender: FDA-Public Use
  Company Number: US-PHARMING-PHAUS2023000794

PATIENT

DRUGS (7)
  1. RUCONEST [Suspect]
     Active Substance: CONESTAT ALFA
     Indication: Hereditary angioedema
     Dosage: 4200 IU, EVERY THREE DAYS
     Route: 042
     Dates: start: 201604
  2. RUCONEST [Suspect]
     Active Substance: CONESTAT ALFA
     Dosage: 4200 IU, EVERY THREE DAYS
     Route: 042
     Dates: start: 201604
  3. RUCONEST [Suspect]
     Active Substance: CONESTAT ALFA
     Dosage: 4200 IU, EVERY THREE DAYS
     Route: 042
     Dates: start: 201604
  4. RUCONEST [Suspect]
     Active Substance: CONESTAT ALFA
     Dosage: 4200 IU, EVERY THREE DAYS
     Route: 042
     Dates: start: 201604
  5. FIRAZYR [Concomitant]
     Active Substance: ICATIBANT ACETATE
     Indication: Product used for unknown indication
  6. EPINEPHRINE [Concomitant]
     Active Substance: EPINEPHRINE
     Indication: Product used for unknown indication
  7. HEPARIN [Concomitant]
     Active Substance: HEPARIN SODIUM
     Indication: Product used for unknown indication

REACTIONS (5)
  - Therapeutic product effect incomplete [Unknown]
  - Weight increased [Unknown]
  - Vomiting [Unknown]
  - Condition aggravated [Unknown]
  - Intentional product use issue [Unknown]
